FAERS Safety Report 7455036-3 (Version None)
Quarter: 2011Q2

REPORT INFORMATION
  Report Type: 
  Country: None (occurrence: None)
  Receive Date: 20110503
  Receipt Date: 20110426
  Transmission Date: 20111010
  Serious: Yes (Hospitalization)
  Sender: FDA-Public Use
  Company Number: DE-BRISTOL-MYERS SQUIBB COMPANY-15614175

PATIENT
  Age: 69 Year
  Sex: Male
  Weight: 60 kg

DRUGS (13)
  1. GEMZAR [Suspect]
     Indication: NON-SMALL CELL LUNG CANCER
     Dosage: LAST RECEIVED 04MAR2011,PATIENT WITHDREW FROM STUDY ON 18MAR11
     Dates: start: 20110225, end: 20110304
  2. OXYGESIC [Concomitant]
     Dates: start: 20110208
  3. FOLSAN [Concomitant]
     Dates: start: 20110208
  4. MOVIPREP [Concomitant]
     Dates: start: 20110218
  5. LYRICA [Concomitant]
     Dates: start: 20110208
  6. PREDNISOLONE [Concomitant]
     Dates: start: 20110208
  7. SAROTEN [Concomitant]
     Dates: start: 20110222
  8. BERODUAL [Concomitant]
  9. CISPLATIN [Suspect]
     Indication: NON-SMALL CELL LUNG CANCER
     Dosage: PATIENT WITHDREW FROM STUDY ON 18MAR11
     Dates: start: 20110225, end: 20110225
  10. NOVALGIN [Concomitant]
     Dates: start: 20110208
  11. SPIRIVA [Concomitant]
  12. TARGIN [Concomitant]
     Dates: start: 20110208
  13. PANTOZOL [Concomitant]
     Dates: start: 20110208

REACTIONS (2)
  - STOMATITIS [None]
  - DEHYDRATION [None]
